FAERS Safety Report 13959140 (Version 2)
Quarter: 2017Q4

REPORT INFORMATION
  Report Type: Spontaneous
  Country: US (occurrence: US)
  Receive Date: 20170912
  Receipt Date: 20171128
  Transmission Date: 20180320
  Serious: No
  Sender: FDA-Public Use
  Company Number: US-JNJFOC-20170901896

PATIENT
  Age: 61 Year
  Sex: Female
  Weight: 103.42 kg

DRUGS (3)
  1. ZYRTEC ALLERGY [Suspect]
     Active Substance: CETIRIZINE HYDROCHLORIDE
     Indication: SEASONAL ALLERGY
     Dosage: TAKING IT ONCE A NIGHT, FORGET IT AND TAKE IT THE NEXT NIGHT.ABOUT 2 YEARS AGO OR LESS
     Route: 048
     Dates: end: 201708
  2. DULERA [Concomitant]
     Active Substance: FORMOTEROL FUMARATE DIHYDRATE\MOMETASONE FUROATE
     Indication: ASTHMA
     Dosage: 1 PUFF A DAY OR WHEN NEEDED
     Route: 065
  3. ZYRTEC ALLERGY [Suspect]
     Active Substance: CETIRIZINE HYDROCHLORIDE
     Indication: SINUS DISORDER
     Dosage: TAKING IT ONCE A NIGHT, FORGET IT AND TAKE IT THE NEXT NIGHT.ABOUT 2 YEARS AGO OR LESS
     Route: 048
     Dates: end: 201708

REACTIONS (3)
  - Urticaria [Recovering/Resolving]
  - Product use in unapproved indication [Recovering/Resolving]
  - Pruritus [Recovering/Resolving]
